FAERS Safety Report 20134735 (Version 1)
Quarter: 2021Q4

REPORT INFORMATION
  Report Type: Spontaneous
  Country: US (occurrence: None)
  Receive Date: 20211130
  Receipt Date: 20211130
  Transmission Date: 20220304
  Serious: Yes (Hospitalization)
  Sender: FDA-Public Use
  Company Number: None

PATIENT
  Age: 54 Year
  Sex: Female

DRUGS (4)
  1. TOBRAMYCIN [Suspect]
     Active Substance: TOBRAMYCIN
     Indication: Bronchiectasis
     Dosage: OTHER QUANTITY : 300 / 5 MG/ML;?
     Route: 055
     Dates: start: 20191022
  2. LOSARTAN/HCT TAB [Concomitant]
  3. OFEV [Concomitant]
     Active Substance: NINTEDANIB
  4. TYLENOL TAB [Concomitant]

REACTIONS (1)
  - Lung transplant [None]

NARRATIVE: CASE EVENT DATE: 20211106
